FAERS Safety Report 12490501 (Version 3)
Quarter: 2016Q3

REPORT INFORMATION
  Report Type: Spontaneous
  Country: FR (occurrence: FR)
  Receive Date: 20160622
  Receipt Date: 20160721
  Transmission Date: 20161109
  Serious: No
  Sender: FDA-Public Use
  Company Number: FR-UCBSA-2016022955

PATIENT
  Sex: Female
  Weight: 50 kg

DRUGS (2)
  1. CIMZIA [Suspect]
     Active Substance: CERTOLIZUMAB PEGOL
     Indication: AXIAL SPONDYLOARTHRITIS
     Dosage: 400 MG, LOT NUMBER 18944, EXP DATE 31-OCT-2016; LOT NUMBER 190972, EXP DATE 30-NOV-2016 AND 191013,
     Route: 058
     Dates: start: 20160504, end: 20160602
  2. PONSTYL [Concomitant]
     Indication: PRODUCT USED FOR UNKNOWN INDICATION
     Dosage: 250 MG, 2X/DAY (BID)
     Route: 048
     Dates: start: 201601, end: 20160602

REACTIONS (2)
  - Cellulitis [Recovering/Resolving]
  - Tooth abscess [Recovering/Resolving]

NARRATIVE: CASE EVENT DATE: 20160601
